FAERS Safety Report 9391556 (Version 1)
Quarter: 2013Q3

REPORT INFORMATION
  Report Type: Spontaneous
  Country: US (occurrence: US)
  Receive Date: 20130709
  Receipt Date: 20130709
  Transmission Date: 20140515
  Serious: Yes (Hospitalization)
  Sender: FDA-Public Use
  Company Number: US-JNJFOC-20130605276

PATIENT
  Age: 51 Year
  Sex: Male

DRUGS (4)
  1. RISPERDAL [Suspect]
     Indication: PSYCHOTIC DISORDER
     Route: 065
     Dates: start: 20130320
  2. RISPERDAL [Suspect]
     Indication: PSYCHOTIC DISORDER
     Route: 065
     Dates: start: 201209
  3. BENADRYL [Suspect]
     Indication: EXTRAPYRAMIDAL DISORDER
     Route: 065
     Dates: start: 20130403, end: 20130613
  4. HALDOL [Concomitant]
     Indication: PRODUCT USED FOR UNKNOWN INDICATION
     Route: 065
     Dates: end: 20130320

REACTIONS (4)
  - Convulsion [Unknown]
  - Hyponatraemia [Recovering/Resolving]
  - Polydipsia [Unknown]
  - Off label use [Unknown]
